FAERS Safety Report 7505873-1 (Version None)
Quarter: 2011Q2

REPORT INFORMATION
  Report Type: 
  Country: None (occurrence: None)
  Receive Date: 20110526
  Receipt Date: 20110516
  Transmission Date: 20111010
  Serious: Yes (Hospitalization)
  Sender: FDA-Public Use
  Company Number: NL-ELI_LILLY_AND_COMPANY-NL201103006220

PATIENT
  Sex: Female
  Weight: 52 kg

DRUGS (15)
  1. IPRATROPIUM BROMIDE [Concomitant]
     Indication: CHRONIC OBSTRUCTIVE PULMONARY DISEASE
     Dosage: 40 UG, 2DD1
     Route: 055
  2. OMEPRAZOLE [Concomitant]
     Dosage: 20 MG, 1DD1
     Route: 048
     Dates: start: 20040101
  3. DIAZEPAM [Concomitant]
     Indication: FEELING OF RELAXATION
     Dosage: 5 MG, 1DD1
     Route: 048
  4. FORTEO [Suspect]
     Indication: OSTEOPOROSIS
     Dosage: 20 UG, QD
     Route: 058
     Dates: start: 20100715, end: 20110223
  5. HYDROXYZINE [Concomitant]
     Indication: PRURITUS
     Dosage: 25 MG, 1DD1
     Route: 048
     Dates: start: 20000101
  6. SERETIDE [Concomitant]
     Indication: CHRONIC OBSTRUCTIVE PULMONARY DISEASE
     Dosage: 2DD1
     Route: 055
  7. SENNOSIDE A+B [Concomitant]
     Indication: CONSTIPATION
     Dosage: 2MG/ML 1DD1, OTHER
     Route: 048
  8. CALCIUM CARBONATE [Concomitant]
     Indication: OSTEOPOROSIS
     Dosage: 1.25 G, 400IE 1DD1
     Route: 048
  9. CODEINE [Concomitant]
     Indication: COUGH
     Dosage: 10 MG, UNK
     Route: 048
     Dates: start: 20100101
  10. ACETAMINOPHEN [Concomitant]
     Indication: PAIN
     Dosage: 1000 MG, AS NEEDED
     Route: 048
     Dates: start: 20040101
  11. LACTULOSE [Concomitant]
     Indication: CONSTIPATION
     Dosage: 670 MG/ML, 3DD
     Route: 048
  12. DICLOFENAC SODIUM [Concomitant]
     Indication: PAIN
     Dosage: 75 MG, 2DD1
     Route: 048
     Dates: start: 20040101
  13. NIFEDIPINE [Concomitant]
     Indication: HYPERTENSION
     Dosage: 20 MG, 2DD1
     Route: 048
     Dates: start: 19860101
  14. OXYCODON [Concomitant]
     Indication: PAIN
     Dosage: 20 MG, 6DD1
     Route: 048
     Dates: start: 20080101
  15. FENTANYL [Concomitant]
     Indication: PAIN
     Dosage: 500 UG, PER HOUR 3 EVERY 3 DAYS
     Dates: start: 20100101

REACTIONS (3)
  - BLOOD CHOLESTEROL INCREASED [None]
  - HYPERTENSION [None]
  - NAUSEA [None]
